FAERS Safety Report 18256837 (Version 2)
Quarter: 2020Q4

REPORT INFORMATION
  Report Type: Spontaneous
  Country: US (occurrence: US)
  Receive Date: 20200911
  Receipt Date: 20201006
  Transmission Date: 20210113
  Serious: Yes (Hospitalization, Other)
  Sender: FDA-Public Use
  Company Number: US-STRIDES ARCOLAB LIMITED-2020SP010989

PATIENT
  Age: 17 Year
  Sex: Female

DRUGS (1)
  1. PREDNISOLONE. [Suspect]
     Active Substance: PREDNISOLONE
     Indication: GUILLAIN-BARRE SYNDROME
     Dosage: 30 MILLIGRAM, QD
     Route: 048

REACTIONS (9)
  - Headache [Not Recovered/Not Resolved]
  - Papilloedema [Recovered/Resolved]
  - Idiopathic intracranial hypertension [Unknown]
  - Vision blurred [Unknown]
  - Hyporeflexia [Recovered/Resolved]
  - Areflexia [Recovered/Resolved]
  - Neurological symptom [Unknown]
  - Withdrawal syndrome [Unknown]
  - Weight increased [Unknown]
